FAERS Safety Report 15530334 (Version 2)
Quarter: 2018Q4

REPORT INFORMATION
  Report Type: Spontaneous
  Country: MY (occurrence: MY)
  Receive Date: 20181020
  Receipt Date: 20181207
  Transmission Date: 20190205
  Serious: Yes (Disabling, Other)
  Sender: FDA-Public Use
  Company Number: MY-TORRENT-00000168

PATIENT
  Age: 19 Year
  Sex: Female

DRUGS (1)
  1. OLANZAPINE. [Suspect]
     Active Substance: OLANZAPINE
     Indication: SCHIZOPHRENIA
     Dosage: 10 MG NIGHTLY FOR THE PAST TWO YEARS
     Route: 048

REACTIONS (2)
  - Cataract cortical [Recovered/Resolved]
  - Diabetes mellitus [Recovered/Resolved]
